FAERS Safety Report 12072312 (Version 1)
Quarter: 2016Q1

REPORT INFORMATION
  Report Type: Spontaneous
  Country: US (occurrence: None)
  Receive Date: 20160211
  Receipt Date: 20160211
  Transmission Date: 20160526
  Serious: No
  Sender: FDA-Public Use
  Company Number: None

PATIENT
  Age: 86 Year
  Sex: Female

DRUGS (1)
  1. HUMIRA [Suspect]
     Active Substance: ADALIMUMAB
     Indication: RHEUMATOID ARTHRITIS
     Dosage: 40 MG, EVERY 14 DAYS, SUBCUTANEOUS
     Route: 058
     Dates: start: 20140529

REACTIONS (3)
  - Condition aggravated [None]
  - Drug effect decreased [None]
  - Inflammation [None]

NARRATIVE: CASE EVENT DATE: 20160209
